FAERS Safety Report 8121152-6 (Version None)
Quarter: 2012Q1

REPORT INFORMATION
  Report Type: 
  Country: None (occurrence: None)
  Receive Date: 20120203
  Receipt Date: 20120124
  Transmission Date: 20120608
  Serious: Yes (Other)
  Sender: FDA-Public Use
  Company Number: 1173516

PATIENT
  Sex: Male

DRUGS (3)
  1. PAMIDRONATE DISODIUM [Suspect]
     Indication: OSTEOGENESIS IMPERFECTA
     Dosage: 30 MG/M2 MONTHLY, 30 MG/M2 TWICE MONTHLY INTRAVENOUS DRIP
     Route: 041
  2. CALCITRIOL [Suspect]
     Indication: OSTEOGENESIS IMPERFECTA
     Dosage: 0.25 MCG TWICE DAILY
  3. CALCITRIOL [Suspect]
     Indication: MULTIPLE FRACTURES
     Dosage: 0.25 MCG TWICE DAILY

REACTIONS (1)
  - NEPHROCALCINOSIS [None]
